FAERS Safety Report 8246105-9 (Version None)
Quarter: 2012Q1

REPORT INFORMATION
  Report Type: 
  Country: None (occurrence: None)
  Receive Date: 20120330
  Receipt Date: 20120320
  Transmission Date: 20120608
  Serious: Yes (Hospitalization)
  Sender: FDA-Public Use
  Company Number: PHHY2012DK026487

PATIENT
  Sex: Female

DRUGS (5)
  1. PREDNISOLONE [Concomitant]
     Indication: ASTHMA
     Dosage: 25 MG, QD
     Route: 048
     Dates: start: 20030501
  2. ZOLEDRONOC ACID [Suspect]
     Route: 042
     Dates: start: 20100101
  3. ZOLEDRONOC ACID [Suspect]
     Indication: OSTEOPOROSIS
     Route: 042
     Dates: start: 20080101
  4. VITAMIN D [Concomitant]
     Route: 048
  5. CALCIUM CARBONATE [Concomitant]
     Route: 048

REACTIONS (4)
  - SEPSIS [None]
  - MULTI-ORGAN FAILURE [None]
  - PULMONARY FUNCTION TEST ABNORMAL [None]
  - BONE DENSITY DECREASED [None]
